FAERS Safety Report 4994210-2 (Version None)
Quarter: 2006Q1

REPORT INFORMATION
  Report Type: 
  Country: None (occurrence: None)
  Receive Date: 20060313
  Receipt Date: 20051024
  Transmission Date: 20060701
  Serious: Yes (Hospitalization)
  Sender: FDA-Public Use
  Company Number: PHEH2005US10332

PATIENT
  Age: 47 Year
  Sex: Male
  Weight: 116.6 kg

DRUGS (7)
  1. TRILEPTAL [Suspect]
     Indication: SCHIZOAFFECTIVE DISORDER
     Dosage: 300 MG,BID,ORAL;900 MG,QD,ORAL;600 MG,BID,ORAL;300 MG,BID,ORAL
     Route: 048
     Dates: start: 20050831, end: 20050912
  2. TRILEPTAL [Suspect]
     Indication: SCHIZOAFFECTIVE DISORDER
     Dosage: 300 MG,BID,ORAL;900 MG,QD,ORAL;600 MG,BID,ORAL;300 MG,BID,ORAL
     Route: 048
     Dates: start: 20050725
  3. TRILEPTAL [Suspect]
     Indication: SCHIZOAFFECTIVE DISORDER
     Dosage: 300 MG,BID,ORAL;900 MG,QD,ORAL;600 MG,BID,ORAL;300 MG,BID,ORAL
     Route: 048
     Dates: start: 20050815
  4. TRILEPTAL [Suspect]
     Indication: SCHIZOAFFECTIVE DISORDER
     Dosage: 300 MG,BID,ORAL;900 MG,QD,ORAL;600 MG,BID,ORAL;300 MG,BID,ORAL
     Route: 048
     Dates: start: 20050826
  5. DEPAKOTE - SLOW RELEASE (VALPROATE SEMISODIUM) [Concomitant]
  6. ZYPREXA [Concomitant]
  7. ABILIFY [Concomitant]

REACTIONS (6)
  - AGITATION [None]
  - BLOOD SODIUM DECREASED [None]
  - DISTURBANCE IN ATTENTION [None]
  - PRESSURE OF SPEECH [None]
  - PSYCHOTIC DISORDER [None]
  - SEDATION [None]
